FAERS Safety Report 9052312 (Version 1)
Quarter: 2013Q1

REPORT INFORMATION
  Report Type: Spontaneous
  Country: DK (occurrence: DK)
  Receive Date: 20130206
  Receipt Date: 20130206
  Transmission Date: 20140127
  Serious: Yes (Hospitalization)
  Sender: FDA-Public Use
  Company Number: DK-PFIZER INC-2013047869

PATIENT
  Age: 86 Year
  Sex: Female

DRUGS (9)
  1. CONTALGIN [Suspect]
     Indication: PROCEDURAL PAIN
     Dosage: STRENGTH: 5 MG
     Route: 048
     Dates: start: 20130115, end: 20130125
  2. AMLODIPIN ^ACTAVIS^ [Concomitant]
     Indication: HYPERTENSION
  3. PINEX [Concomitant]
     Indication: PAIN
  4. ANCOZAN [Concomitant]
     Indication: HYPERTENSION
  5. ELTROXIN [Concomitant]
     Indication: HYPOTHYROIDISM
  6. SELO-ZOK [Concomitant]
     Indication: ATRIAL FIBRILLATION
  7. PRADAXA [Concomitant]
     Indication: ATRIAL FIBRILLATION
  8. CENTYL MED KALIUMKLORID [Concomitant]
     Indication: HYPERTENSION
  9. EMPERAL [Concomitant]
     Indication: NAUSEA

REACTIONS (5)
  - Dehydration [Recovering/Resolving]
  - Urinary tract infection [Unknown]
  - Hyponatraemia [Unknown]
  - Nausea [Unknown]
  - Vomiting [Unknown]
